FAERS Safety Report 17376910 (Version 1)
Quarter: 2020Q1

REPORT INFORMATION
  Report Type: Spontaneous
  Country: US (occurrence: US)
  Receive Date: 20200206
  Receipt Date: 20200206
  Transmission Date: 20200409
  Serious: No
  Sender: FDA-Public Use
  Company Number: US-ASTRAZENECA-2020SE14168

PATIENT
  Sex: Female
  Weight: 7.3 kg

DRUGS (8)
  1. ENFAMIL SOLUTION [Concomitant]
     Route: 065
  2. EPINEPHRINE HCL [Concomitant]
     Active Substance: EPINEPHRINE
     Route: 065
  3. SYNAGIS [Suspect]
     Active Substance: PALIVIZUMAB
     Indication: CHRONIC RESPIRATORY DISEASE
     Route: 030
     Dates: start: 20191129
  4. BUDESONIDE. [Suspect]
     Active Substance: BUDESONIDE
     Dosage: 0.25 MG/2 ML
     Route: 055
  5. ZARBY^S HONEY SYRUP [Concomitant]
     Route: 065
  6. IPATROPIUM-ALBUTEROL [Concomitant]
     Route: 065
  7. LASIX [Concomitant]
     Active Substance: FUROSEMIDE
     Dosage: 20.0MG UNKNOWN
     Route: 065
  8. ZANTAC [Concomitant]
     Active Substance: RANITIDINE HYDROCHLORIDE
     Dosage: 150.0MG UNKNOWN
     Route: 065

REACTIONS (3)
  - Nasopharyngitis [Not Recovered/Not Resolved]
  - Nasal congestion [Not Recovered/Not Resolved]
  - Cough [Not Recovered/Not Resolved]
